FAERS Safety Report 21738489 (Version 2)
Quarter: 2022Q4

REPORT INFORMATION
  Report Type: Other
  Country: DE (occurrence: None)
  Receive Date: 20221216
  Receipt Date: 20221220
  Transmission Date: 20230113
  Serious: Yes (Other)
  Sender: FDA-Public Use
  Company Number: DE-ROCHE-3243237

PATIENT
  Age: 29 Year
  Sex: Female

DRUGS (2)
  1. OCRELIZUMAB [Suspect]
     Active Substance: OCRELIZUMAB
     Indication: Relapsing multiple sclerosis
     Route: 042
     Dates: start: 20191203, end: 20191218
  2. OCRELIZUMAB [Suspect]
     Active Substance: OCRELIZUMAB
     Route: 042
     Dates: start: 20200616

REACTIONS (7)
  - Neutropenia [Recovered/Resolved]
  - Blood bilirubin increased [Recovered/Resolved]
  - CD4 lymphocytes increased [Not Recovered/Not Resolved]
  - White blood cell count decreased [Unknown]
  - Lymphocyte count increased [Unknown]
  - CD4 lymphocytes increased [Unknown]
  - CD8 lymphocytes increased [Unknown]

NARRATIVE: CASE EVENT DATE: 20210611
